FAERS Safety Report 11776205 (Version 7)
Quarter: 2020Q2

REPORT INFORMATION
  Report Type: Spontaneous
  Country: JP (occurrence: JP)
  Receive Date: 20151125
  Receipt Date: 20200430
  Transmission Date: 20200713
  Serious: Yes (Death, Life-Threatening, Hospitalization, Other)
  Sender: FDA-Public Use
  Company Number: JP-009507513-1511JPN011970

PATIENT
  Age: 59 Year
  Sex: Male

DRUGS (57)
  1. MEDICON (DEXTROMETHORPHAN HYDROBROMIDE) [Concomitant]
     Active Substance: DEXTROMETHORPHAN HYDROBROMIDE
     Dosage: 45 MILLIGRAM, QD
     Route: 048
     Dates: end: 20140317
  2. MUCOSOLVAN L [Concomitant]
     Active Substance: AMBROXOL HYDROCHLORIDE
     Dosage: 90 MILLIGRAM, QD
     Route: 048
     Dates: start: 20140313, end: 20140313
  3. GASTER [Concomitant]
     Active Substance: FAMOTIDINE
     Dosage: 40 MILLIGRAM, QD
     Route: 048
     Dates: start: 20140406, end: 20140520
  4. NESINA [Concomitant]
     Active Substance: ALOGLIPTIN BENZOATE
     Dosage: 25 MILLIGRAM, QD
     Route: 048
     Dates: start: 20140411, end: 20140417
  5. ALDACTONE A [Concomitant]
     Active Substance: SPIRONOLACTONE
     Dosage: 50 MILLIGRAM, QD
     Route: 048
     Dates: start: 20140423, end: 20140527
  6. PRIMPERAN [Concomitant]
     Active Substance: METOCLOPRAMIDE HYDROCHLORIDE
     Dosage: 15 MILLIGRAM, QD
     Route: 048
     Dates: start: 20140513, end: 20140519
  7. ALENDRONATE SODIUM. [Suspect]
     Active Substance: ALENDRONATE SODIUM
     Indication: OSTEOPOROSIS PROPHYLAXIS
     Dosage: 35 MILLIGRAM, QW
     Route: 048
     Dates: start: 20140313, end: 20140515
  8. PREDNISOLONE. [Suspect]
     Active Substance: PREDNISOLONE
     Dosage: 25 MILLIGRAM, QD
     Route: 048
     Dates: start: 20140605, end: 20140618
  9. INSULIN [Concomitant]
     Active Substance: INSULIN NOS
     Indication: DIABETES MELLITUS
     Dosage: UNK
  10. MUCOSOLVAN L [Concomitant]
     Active Substance: AMBROXOL HYDROCHLORIDE
     Dosage: 45 MILLIGRAM, QD
     Route: 048
     Dates: start: 20140314, end: 20140314
  11. ACTOS [Concomitant]
     Active Substance: PIOGLITAZONE HYDROCHLORIDE
     Dosage: 60 MILLIGRAM, QD
     Route: 048
     Dates: start: 20140408, end: 20140409
  12. FLUITRAN [Concomitant]
     Active Substance: TRICHLORMETHIAZIDE
     Dosage: 2 MILLIGRAM, QD
     Route: 048
     Dates: start: 20140423, end: 20140527
  13. FLUITRAN [Concomitant]
     Active Substance: TRICHLORMETHIAZIDE
     Dosage: 4 UNK
     Route: 048
     Dates: start: 20140528, end: 20140603
  14. FLUITRAN [Concomitant]
     Active Substance: TRICHLORMETHIAZIDE
     Dosage: 4 UNK
     Route: 048
     Dates: start: 20140604, end: 20140622
  15. LASIX [Concomitant]
     Active Substance: FUROSEMIDE
     Dosage: 40 MILLIGRAM, QD
     Route: 048
     Dates: start: 20140702, end: 20140708
  16. PARIET [Concomitant]
     Active Substance: RABEPRAZOLE SODIUM
     Dosage: 1 MILLIGRAM, QD
     Route: 048
     Dates: start: 20140318, end: 20140325
  17. MAGMITT [Concomitant]
     Active Substance: MAGNESIUM OXIDE
     Dosage: 1500 MG, QD
     Route: 048
     Dates: end: 20140324
  18. BAKTAR [Concomitant]
     Active Substance: SULFAMETHOXAZOLE\TRIMETHOPRIM
     Dosage: 1 DOSAGE FORM, QD
     Route: 048
     Dates: start: 20140320, end: 20140324
  19. SODIUM CHLORIDE. [Concomitant]
     Active Substance: SODIUM CHLORIDE
     Dosage: 3 DOSAGE FORM, QD
     Dates: start: 20140405, end: 20140407
  20. PREDNISOLONE. [Suspect]
     Active Substance: PREDNISOLONE
     Indication: INTERSTITIAL LUNG DISEASE
     Dosage: 60 MG/DAY
     Route: 048
     Dates: start: 20140305, end: 20140317
  21. PREDNISOLONE. [Suspect]
     Active Substance: PREDNISOLONE
     Dosage: 20 MILLIGRAM, QD
     Route: 048
     Dates: start: 20140619, end: 20140702
  22. ROZEREM [Concomitant]
     Active Substance: RAMELTEON
     Dosage: 8 UNK
     Route: 048
     Dates: start: 20140315, end: 20140316
  23. GASTER [Concomitant]
     Active Substance: FAMOTIDINE
     Dosage: 80 MILLIGRAM, QD
     Route: 048
     Dates: start: 20140404, end: 20140405
  24. GASTER [Concomitant]
     Active Substance: FAMOTIDINE
     Dosage: 40 MILLIGRAM, QD
     Route: 048
     Dates: start: 20140525, end: 20140611
  25. NESINA [Concomitant]
     Active Substance: ALOGLIPTIN BENZOATE
     Dosage: 50 MILLIGRAM, QD
     Route: 048
     Dates: start: 20140408, end: 20140409
  26. ACTOS [Concomitant]
     Active Substance: PIOGLITAZONE HYDROCHLORIDE
     Dosage: 30 MILLIGRAM, QD
     Route: 048
     Dates: start: 20140401, end: 20140407
  27. GASCON (DIMETHICONE) [Concomitant]
     Active Substance: DIMETHICONE
     Dosage: 240 MILLIGRAM, QD
     Route: 048
     Dates: start: 20140421, end: 20140422
  28. TRAZENTA [Concomitant]
     Active Substance: LINAGLIPTIN
     Dosage: 5 MILLIGRAM, QD
     Route: 048
     Dates: start: 20140418, end: 20140514
  29. PREDNISOLONE. [Suspect]
     Active Substance: PREDNISOLONE
     Dosage: 30 MILLIGRAM, QD
     Route: 048
     Dates: start: 20140529, end: 20140604
  30. SOLU-MEDROL [Suspect]
     Active Substance: METHYLPREDNISOLONE SODIUM SUCCINATE
     Indication: INTERSTITIAL LUNG DISEASE
     Dosage: 1000 MG/DAY
     Route: 042
  31. MUCODYNE [Concomitant]
     Active Substance: CARBOCYSTEINE
     Dosage: 750 MILLIGRAM, QD
     Dates: start: 20140318, end: 20140405
  32. ASVERIN [Concomitant]
     Dosage: 60 MILLIGRAM, QD
     Route: 048
     Dates: start: 20140318, end: 20140329
  33. ACTOS [Concomitant]
     Active Substance: PIOGLITAZONE HYDROCHLORIDE
     Dosage: 30 MILLIGRAM, QD
     Route: 048
     Dates: start: 20140411, end: 20140514
  34. NEXIUM [Concomitant]
     Active Substance: ESOMEPRAZOLE MAGNESIUM
     Dosage: 20 MILLIGRAM, QD
     Route: 048
     Dates: start: 20140611, end: 20140709
  35. SOLU-MEDROL [Suspect]
     Active Substance: METHYLPREDNISOLONE SODIUM SUCCINATE
     Dosage: 1000 MG/DAY
     Route: 042
  36. AMARYL [Concomitant]
     Active Substance: GLIMEPIRIDE
     Dosage: 6 MILLIGRAM, QD
     Route: 048
     Dates: end: 20140326
  37. REMERON [Concomitant]
     Active Substance: MIRTAZAPINE
     Dosage: 30 MILLIGRAM, QD
     Route: 048
     Dates: end: 20140314
  38. REMERON [Concomitant]
     Active Substance: MIRTAZAPINE
     Dosage: 15 MILLIGRAM, QD
     Route: 048
     Dates: start: 20140315, end: 20140316
  39. ALDACTONE A [Concomitant]
     Active Substance: SPIRONOLACTONE
     Dosage: 25 MILLIGRAM, QD
     Route: 048
     Dates: start: 20140528, end: 20140708
  40. GASMOTIN [Concomitant]
     Active Substance: MOSAPRIDE CITRATE
     Dosage: 15 MILLIGRAM, QD
     Route: 048
     Dates: start: 20140421, end: 20140422
  41. PREDNISOLONE. [Suspect]
     Active Substance: PREDNISOLONE
     Dosage: 50 MILLIGRAM, QD
     Route: 048
     Dates: start: 20140401, end: 20140414
  42. PREDNISOLONE. [Suspect]
     Active Substance: PREDNISOLONE
     Dosage: 45 MILLIGRAM, QD
     Route: 048
     Dates: start: 20140415, end: 20140428
  43. PREDNISOLONE. [Suspect]
     Active Substance: PREDNISOLONE
     Dosage: 15 MILLIGRAM, QD
     Route: 048
     Dates: start: 20140703
  44. PREDNISOLONE SODIUM SUCCINATE [Suspect]
     Active Substance: PREDNISOLONE SODIUM SUCCINATE
     Indication: INTERSTITIAL LUNG DISEASE
     Dosage: 20 MILLIGRAM, BID
     Route: 048
  45. TAKEPRON [Concomitant]
     Active Substance: LANSOPRAZOLE
     Dosage: 15 MILLIGRAM, QD
     Route: 048
     Dates: end: 20140317
  46. GASTER [Concomitant]
     Active Substance: FAMOTIDINE
     Dosage: 40 MILLIGRAM, QD
     Route: 048
     Dates: start: 20140328, end: 20140403
  47. TRAMCET [Concomitant]
     Active Substance: ACETAMINOPHEN\TRAMADOL
     Dosage: 3 DOSAGE FORM, QD
     Route: 048
     Dates: start: 20140513, end: 20140519
  48. PREDNISOLONE. [Suspect]
     Active Substance: PREDNISOLONE
     Dosage: 55 MILLIGRAM, QD
     Route: 048
     Dates: start: 20140318, end: 20140331
  49. PREDNISOLONE. [Suspect]
     Active Substance: PREDNISOLONE
     Dosage: 40 MILLIGRAM, QD
     Route: 048
     Dates: start: 20140429, end: 20140513
  50. PREDNISOLONE. [Suspect]
     Active Substance: PREDNISOLONE
     Dosage: 35 UNK
     Route: 048
     Dates: start: 20140514, end: 20140528
  51. ROZEREM [Concomitant]
     Active Substance: RAMELTEON
     Dosage: 16 MILLIGRAM, QD
     Route: 048
     Dates: end: 20140314
  52. LAC-B [Concomitant]
     Active Substance: BIFIDOBACTERIUM SPP.
     Dosage: 3 DOSAGE FORM, QD
     Route: 048
     Dates: start: 20140318, end: 20140329
  53. NESINA [Concomitant]
     Active Substance: ALOGLIPTIN BENZOATE
     Dosage: 25 MILLIGRAM, QD
     Route: 048
     Dates: start: 20140401, end: 20140407
  54. SAMTIREL [Concomitant]
     Active Substance: ATOVAQUONE
     Dosage: 2 DOSAGE FORM, QD
     Route: 048
     Dates: start: 20140402, end: 20140520
  55. LIVACT [Concomitant]
     Active Substance: AMINO ACIDS, SOURCE UNSPECIFIED
     Dosage: 3 DOSAGE FORM, QD
     Route: 048
     Dates: start: 20140423, end: 20140708
  56. LASIX [Concomitant]
     Active Substance: FUROSEMIDE
     Dosage: 20 MILLIGRAM, QD
     Route: 048
     Dates: start: 20140430, end: 20140701
  57. NEXIUM [Concomitant]
     Active Substance: ESOMEPRAZOLE MAGNESIUM
     Dosage: 20 MILLIGRAM, QD
     Route: 048
     Dates: start: 20140326, end: 20140329

REACTIONS (5)
  - Sepsis [Fatal]
  - Osteonecrosis of jaw [Not Recovered/Not Resolved]
  - Cellulitis [Fatal]
  - Disseminated intravascular coagulation [Unknown]
  - Multiple organ dysfunction syndrome [Fatal]

NARRATIVE: CASE EVENT DATE: 20140313
